FAERS Safety Report 6719082-7 (Version None)
Quarter: 2010Q2

REPORT INFORMATION
  Report Type: 
  Country: None (occurrence: None)
  Receive Date: 20100511
  Receipt Date: 20100510
  Transmission Date: 20101027
  Serious: Yes (Death, Hospitalization)
  Sender: FDA-Public Use
  Company Number: US-ROXANE LABORATORIES, INC.-2010-RO-00182RO

PATIENT
  Sex: Male

DRUGS (15)
  1. PREDNISONE TAB [Suspect]
     Indication: PROSTATE CANCER
     Dosage: 10 MG
     Route: 048
     Dates: start: 20090130
  2. FENTANYL [Suspect]
     Indication: CANCER PAIN
     Route: 062
     Dates: start: 20090519, end: 20090527
  3. FENTANYL [Suspect]
     Route: 062
     Dates: start: 20090527
  4. DILAUDID [Suspect]
     Indication: CANCER PAIN
     Dosage: 40 MG
     Route: 048
  5. DILAUDID [Suspect]
     Route: 048
     Dates: start: 20090529
  6. DILAUDID [Suspect]
     Dates: start: 20090520
  7. ALPRAZOLAM [Suspect]
     Indication: SLEEP DISORDER
     Dosage: 0.5 MG
     Route: 048
     Dates: start: 20090518
  8. ALPRAZOLAM [Suspect]
     Indication: ANXIETY
  9. GABAPENTIN [Concomitant]
     Indication: PAIN
     Dosage: 300 MG
     Route: 048
     Dates: start: 20090518
  10. DOCUSATE [Concomitant]
     Dosage: 100 MG
  11. SENNA [Concomitant]
  12. CALCIUM [Concomitant]
  13. M.V.I. [Concomitant]
  14. NEURONTIN [Concomitant]
     Indication: PAIN
     Dosage: 200 MG
     Route: 048
  15. TAXOTERE [Concomitant]
     Indication: PROSTATE CANCER METASTATIC

REACTIONS (14)
  - ANAEMIA [None]
  - BLOOD CREATINE PHOSPHOKINASE INCREASED [None]
  - CONDITION AGGRAVATED [None]
  - CONFUSIONAL STATE [None]
  - DEATH [None]
  - DEPRESSED LEVEL OF CONSCIOUSNESS [None]
  - DYSPNOEA [None]
  - FATIGUE [None]
  - INSOMNIA [None]
  - LIVER FUNCTION TEST ABNORMAL [None]
  - PAIN [None]
  - PANCYTOPENIA [None]
  - PLATELET COUNT DECREASED [None]
  - SEDATION [None]
